FAERS Safety Report 6119756-5 (Version None)
Quarter: 2009Q1

REPORT INFORMATION
  Report Type: 
  Country: None (occurrence: None)
  Receive Date: 20090316
  Receipt Date: 20090310
  Transmission Date: 20090719
  Serious: Yes (Other)
  Sender: FDA-Public Use
  Company Number: GB-ASTRAZENECA-2009GB00668

PATIENT
  Sex: Male

DRUGS (1)
  1. MERONEM [Suspect]
     Route: 042
     Dates: start: 20081201, end: 20081201

REACTIONS (1)
  - ANAPHYLACTIC REACTION [None]
